FAERS Safety Report 9331062 (Version 1)
Quarter: 2013Q2

REPORT INFORMATION
  Report Type: Spontaneous
  Country: NO (occurrence: NO)
  Receive Date: 20130605
  Receipt Date: 20130605
  Transmission Date: 20140414
  Serious: Yes (Other)
  Sender: FDA-Public Use
  Company Number: NO-009507513-1305NOR013428

PATIENT
  Age: 32 Year
  Sex: Female
  Weight: 50 kg

DRUGS (2)
  1. NUVARING [Suspect]
     Indication: CONTRACEPTION
     Dosage: VAGINAL RING: 120?G/ 15 ?G ETONOGESTREL/ 11,7 MG OF ETHINYL ESTRADIOL 2,7 MG.
     Dates: start: 20101022, end: 20101112
  2. VITAMINS (UNSPECIFIED) [Concomitant]
     Indication: ROUTINE HEALTH MAINTENANCE

REACTIONS (3)
  - Depression [Recovered/Resolved]
  - Affect lability [Recovered/Resolved with Sequelae]
  - Dyskinesia [Recovered/Resolved with Sequelae]
